FAERS Safety Report 5014137-X (Version None)
Quarter: 2006Q2

REPORT INFORMATION
  Report Type: 
  Country: None (occurrence: None)
  Receive Date: 20060414
  Receipt Date: 20060106
  Transmission Date: 20061013
  Serious: No
  Sender: FDA-Public Use
  Company Number: 2006SP000102

PATIENT
  Age: 49 Year
  Sex: Female

DRUGS (2)
  1. LUNESTA [Suspect]
     Dosage: 3 MG, HS, ORAL
     Route: 048
     Dates: start: 20060105, end: 20060105
  2. LUNESTA [Suspect]
     Dosage: 3 MG, HS, ORAL
     Route: 048
     Dates: start: 20051229

REACTIONS (2)
  - DRUG INEFFECTIVE [None]
  - INSOMNIA [None]
